FAERS Safety Report 26207073 (Version 1)
Quarter: 2025Q4

REPORT INFORMATION
  Report Type: Report from Study
  Country: US (occurrence: US)
  Receive Date: 20251229
  Receipt Date: 20251229
  Transmission Date: 20260117
  Serious: Yes (Other)
  Sender: ACADIA PHARMACEUTICALS
  Company Number: US-ACADIA PHARMACEUTICALS INC.-ACA-2025-PIM-013532

PATIENT
  Sex: Female

DRUGS (14)
  1. NUPLAZID [Suspect]
     Active Substance: PIMAVANSERIN TARTRATE
     Indication: Parkinson^s disease
     Dosage: 34 MILLIGRAM, QD
     Route: 048
  2. NUPLAZID [Suspect]
     Active Substance: PIMAVANSERIN TARTRATE
     Indication: Hallucination
  3. NUPLAZID [Suspect]
     Active Substance: PIMAVANSERIN TARTRATE
     Indication: Delusion
  4. B COMPLEX [AMINOBENZOIC ACID;BIOTIN;CALCIUM PANTOTHENATE;CHOLINE BITAR [Concomitant]
  5. METHYLPREDNIS [Concomitant]
     Dosage: TBP
  6. BENAZEPRIL HYDROCHLORIDE [Concomitant]
     Active Substance: BENAZEPRIL HYDROCHLORIDE
  7. BUSPIRONE HCL [Concomitant]
     Active Substance: BUSPIRONE HYDROCHLORIDE
  8. CARBIDOPA\LEVODOPA [Concomitant]
     Active Substance: CARBIDOPA\LEVODOPA
  9. LEVOTHYROXINE [Concomitant]
     Active Substance: LEVOTHYROXINE
  10. OMEPRAZOLE [Concomitant]
     Active Substance: OMEPRAZOLE
  11. VITAMIN C [Concomitant]
     Active Substance: ASCORBIC ACID
  12. VIT D [VITAMIN D NOS] [Concomitant]
  13. VIT E [TOCOPHEROL] [Concomitant]
     Dosage: 1000 UNIT
  14. VITAMINS [Concomitant]
     Active Substance: VITAMINS

REACTIONS (1)
  - Parkinson^s disease [Unknown]
